FAERS Safety Report 5634207-2 (Version None)
Quarter: 2008Q1

REPORT INFORMATION
  Report Type: 
  Country: None (occurrence: None)
  Receive Date: 20080219
  Receipt Date: 20080204
  Transmission Date: 20080703
  Serious: Yes (Hospitalization)
  Sender: FDA-Public Use
  Company Number: ADE2008-0126

PATIENT
  Age: 66 Year
  Sex: Male

DRUGS (7)
  1. SIMVASTATIN [Suspect]
     Indication: HYPERCHOLESTEROLAEMIA
     Dosage: 20MG PO
     Route: 048
     Dates: start: 20010201, end: 20021230
  2. CYPROTERONE 100MG [Suspect]
     Indication: PROSTATE CANCER
     Dosage: 100MG 3 TIMES DAILY PO
     Route: 048
     Dates: start: 20021001, end: 20021230
  3. ALLOPURINOL [Concomitant]
  4. AMLODIPINE [Concomitant]
  5. ASPIRIN [Concomitant]
  6. CANDESARTAN CILEXETIL [Concomitant]
  7. OMEPRAZOLE [Concomitant]

REACTIONS (3)
  - DEEP VEIN THROMBOSIS [None]
  - DRUG INTERACTION [None]
  - RHABDOMYOLYSIS [None]
